FAERS Safety Report 9306053 (Version 1)
Quarter: 2013Q2

REPORT INFORMATION
  Report Type: Spontaneous
  Country: US (occurrence: None)
  Receive Date: 20130522
  Receipt Date: 20130522
  Transmission Date: 20140414
  Serious: Yes (Other)
  Sender: FDA-Public Use
  Company Number: None

PATIENT
  Age: 48 Year
  Sex: Male
  Weight: 84.37 kg

DRUGS (1)
  1. CURADERM [Suspect]

REACTIONS (2)
  - Skin ulcer [None]
  - Wound secretion [None]
